FAERS Safety Report 4897389-6 (Version None)
Quarter: 2006Q1

REPORT INFORMATION
  Report Type: 
  Country: None (occurrence: None)
  Receive Date: 20060130
  Receipt Date: 20060130
  Transmission Date: 20060701
  Serious: Yes (Other)
  Sender: FDA-Public Use
  Company Number: None

PATIENT
  Age: 40 Year
  Sex: Female
  Weight: 70.3075 kg

DRUGS (1)
  1. LEVAQUIN [Suspect]
     Indication: SINUSITIS
     Dosage: 500MG  1 A DAY   PO
     Route: 048
     Dates: start: 20060103, end: 20060120

REACTIONS (12)
  - BACK DISORDER [None]
  - BURNING SENSATION [None]
  - DIFFICULTY IN WALKING [None]
  - FORMICATION [None]
  - HEADACHE [None]
  - INSOMNIA [None]
  - MOVEMENT DISORDER [None]
  - PRURITUS [None]
  - RASH [None]
  - SENSATION OF FOREIGN BODY [None]
  - UNEVALUABLE EVENT [None]
  - URTICARIA [None]
